FAERS Safety Report 16044925 (Version 1)
Quarter: 2019Q1

REPORT INFORMATION
  Report Type: Spontaneous
  Country: JP (occurrence: JP)
  Receive Date: 20190307
  Receipt Date: 20190307
  Transmission Date: 20190418
  Serious: Yes (Life-Threatening, Hospitalization, Other)
  Sender: FDA-Public Use
  Company Number: JP-ACCORD-110676

PATIENT
  Age: 64 Year
  Sex: Male

DRUGS (3)
  1. FLUOROURACIL. [Suspect]
     Active Substance: FLUOROURACIL
     Indication: SQUAMOUS CELL CARCINOMA OF THE HYPOPHARYNX
     Dosage: ONE COURSE OF INDUCTION CHEMOTHERAPY
  2. DOCETAXEL. [Suspect]
     Active Substance: DOCETAXEL
     Indication: SQUAMOUS CELL CARCINOMA OF THE HYPOPHARYNX
     Dosage: ONE COURSE OF INDUCTION CHEMOTHERAPY
  3. CISPLATIN. [Suspect]
     Active Substance: CISPLATIN
     Indication: SQUAMOUS CELL CARCINOMA OF THE HYPOPHARYNX
     Dosage: ONE COURSE OF INDUCTION CHEMOTHERAPY

REACTIONS (4)
  - Bacterial translocation [Recovered/Resolved]
  - Septic shock [Recovered/Resolved]
  - Systemic infection [Recovered/Resolved]
  - Enterobacter infection [Recovered/Resolved]
